FAERS Safety Report 4663066-X (Version None)
Quarter: 2005Q2

REPORT INFORMATION
  Report Type: 
  Country: None (occurrence: None)
  Receive Date: 20050511
  Receipt Date: 20050204
  Transmission Date: 20051028
  Serious: Yes (Other)
  Sender: FDA-Public Use
  Company Number: 2004236731US

PATIENT
  Age: 21 Year
  Sex: Female
  Weight: 79.4 kg

DRUGS (2)
  1. XANAX XR (ALPRAZOLAM) [Suspect]
     Indication: PANIC ATTACK
     Dosage: 1 MG (1 MG, 1 IN 1 D), ORAL
     Route: 048
     Dates: start: 20040907, end: 20041020
  2. FLUOXETINE HCL [Suspect]
     Indication: PANIC DISORDER
     Dosage: 20 MG (20 MG, 1 IN 1 D), ORAL
     Route: 048
     Dates: start: 20041005, end: 20041118

REACTIONS (3)
  - DRUG WITHDRAWAL SYNDROME [None]
  - GRAND MAL CONVULSION [None]
  - MOUTH INJURY [None]
